FAERS Safety Report 4263742-7 (Version None)
Quarter: 2004Q1

REPORT INFORMATION
  Report Type: 
  Country: None (occurrence: None)
  Receive Date: 20040102
  Receipt Date: 20031218
  Transmission Date: 20041129
  Serious: Yes (Hospitalization)
  Sender: FDA-Public Use
  Company Number: DSA_23619_2003

PATIENT
  Age: 42 Year
  Sex: Female

DRUGS (4)
  1. TAVOR [Suspect]
     Dates: start: 20031115, end: 20031115
  2. ALCOHOL [Suspect]
     Dates: start: 20031115, end: 20031115
  3. CITALOPRAM [Suspect]
     Dosage: 3600 MG ONCE PO
     Route: 048
     Dates: start: 20031115, end: 20031115
  4. ZYPREXA [Suspect]
     Dosage: 1800 MG ONCE PO
     Route: 048
     Dates: start: 20031115, end: 20031115

REACTIONS (8)
  - DIARRHOEA [None]
  - INTENTIONAL OVERDOSE [None]
  - MYDRIASIS [None]
  - NAUSEA [None]
  - PLATELET COUNT INCREASED [None]
  - PROTHROMBIN TIME SHORTENED [None]
  - SOMNOLENCE [None]
  - VOMITING [None]
